FAERS Safety Report 9140800 (Version 1)
Quarter: 2013Q1

REPORT INFORMATION
  Report Type: Spontaneous
  Country: GB (occurrence: GB)
  Receive Date: 20130305
  Receipt Date: 20130305
  Transmission Date: 20140127
  Serious: Yes (Disabling)
  Sender: FDA-Public Use
  Company Number: GB-TEVA-389062ISR

PATIENT
  Sex: 0

DRUGS (1)
  1. AMITRIPTYLINE [Suspect]
     Dosage: AT NIGHT
     Route: 048
     Dates: start: 20130212, end: 20130213

REACTIONS (4)
  - Hypersensitivity [Recovering/Resolving]
  - Eye swelling [Recovering/Resolving]
  - Lip swelling [Recovering/Resolving]
  - Pruritus [Recovering/Resolving]
